FAERS Safety Report 8523710-3 (Version None)
Quarter: 2012Q2

REPORT INFORMATION
  Report Type: 
  Country: None (occurrence: None)
  Receive Date: 20120406
  Receipt Date: 20100629
  Transmission Date: 20120825
  Serious: Yes (Other)
  Sender: FDA-Public Use
  Company Number: PHHY2010US33739

PATIENT
  Sex: Male

DRUGS (1)
  1. TASIGNA [Suspect]
     Indication: METASTATIC NEOPLASM
     Dosage: 400 MG, BID, ORAL
     Route: 048
     Dates: start: 20091130, end: 20100524

REACTIONS (2)
  - NEOPLASM MALIGNANT [None]
  - GASTROINTESTINAL STROMAL TUMOUR [None]
